FAERS Safety Report 9823391 (Version 1)
Quarter: 2014Q1

REPORT INFORMATION
  Report Type: Report from Study
  Country: US (occurrence: US)
  Receive Date: 20140116
  Receipt Date: 20140116
  Transmission Date: 20141002
  Serious: Yes (Hospitalization, Other)
  Sender: FDA-Public Use
  Company Number: US-ABBVIE-14P-163-1188258-00

PATIENT
  Age: 40 Year
  Sex: Female

DRUGS (6)
  1. HUMIRA [Suspect]
     Indication: CROHN^S DISEASE
     Dates: start: 201104
  2. HUMIRA [Suspect]
  3. HUMIRA [Suspect]
  4. HUMIRA [Suspect]
     Dates: start: 20140102
  5. PROMETHAZINE [Suspect]
     Indication: NAUSEA
     Dates: start: 2013
  6. WELCHOL [Concomitant]
     Indication: DIARRHOEA

REACTIONS (14)
  - Abdominal adhesions [Not Recovered/Not Resolved]
  - Gallbladder non-functioning [Unknown]
  - Pericardial effusion [Recovered/Resolved]
  - Viral infection [Recovered/Resolved]
  - Musculoskeletal pain [Recovered/Resolved]
  - Pleurisy [Recovered/Resolved]
  - Depression [Recovering/Resolving]
  - Anxiety [Recovering/Resolving]
  - Gastric disorder [Unknown]
  - Menopausal symptoms [Unknown]
  - Dyspepsia [Unknown]
  - Nausea [Unknown]
  - Flatulence [Unknown]
  - Wrong patient received medication [Unknown]
